FAERS Safety Report 13467692 (Version 2)
Quarter: 2017Q4

REPORT INFORMATION
  Report Type: Spontaneous
  Country: US (occurrence: US)
  Receive Date: 20170421
  Receipt Date: 20171023
  Transmission Date: 20180320
  Serious: Yes (Other)
  Sender: FDA-Public Use
  Company Number: US-MUNDIPHARMA DS AND PHARMACOVIGILANCE-USA-2016-0135363

PATIENT
  Sex: Female

DRUGS (2)
  1. OXYCONTIN [Suspect]
     Active Substance: OXYCODONE HYDROCHLORIDE
     Indication: RHEUMATOID ARTHRITIS
     Dosage: UNK
     Route: 048
  2. OXYCONTIN [Suspect]
     Active Substance: OXYCODONE HYDROCHLORIDE
     Indication: PAIN
     Dosage: 190 MG, DAILY
     Route: 048

REACTIONS (7)
  - Tremor [Unknown]
  - Anxiety [Unknown]
  - Drug dependence [Unknown]
  - Inadequate analgesia [Unknown]
  - Feelings of worthlessness [Unknown]
  - Discomfort [Unknown]
  - Somnolence [Unknown]
